FAERS Safety Report 5204233-6 (Version None)
Quarter: 2007Q1

REPORT INFORMATION
  Report Type: 
  Country: None (occurrence: None)
  Receive Date: 20070110
  Receipt Date: 20060331
  Transmission Date: 20070707
  Serious: No
  Sender: FDA-Public Use
  Company Number: US-BRISTOL-MYERS SQUIBB COMPANY-13250683

PATIENT
  Age: 9 Year
  Sex: Female
  Weight: 34 kg

DRUGS (4)
  1. ABILIFY [Suspect]
     Indication: BIPOLAR DISORDER
     Dosage: AFTER 1 WK DEC TO 5 MG/D; AFTER 2 WKS INC TO 10 MG/D; 16-JAN-2005 INC TO 15 MG/D; THEN 20 MG/D.
     Route: 048
     Dates: start: 20051220
  2. XANAX [Concomitant]
  3. LITHIUM CARBONATE [Concomitant]
  4. RISPERDAL [Concomitant]

REACTIONS (9)
  - AGITATION [None]
  - ANXIETY [None]
  - CRYING [None]
  - FORMICATION [None]
  - PSYCHOTIC DISORDER [None]
  - RASH PAPULAR [None]
  - REACTION TO COLOURING [None]
  - SCREAMING [None]
  - SELF-INDUCED VOMITING [None]
